FAERS Safety Report 6106231-7 (Version None)
Quarter: 2009Q1

REPORT INFORMATION
  Report Type: 
  Country: None (occurrence: None)
  Receive Date: 20090306
  Receipt Date: 20090227
  Transmission Date: 20090719
  Serious: Yes (Other)
  Sender: FDA-Public Use
  Company Number: CH-TEVA-186381ISR

PATIENT
  Age: 50 Year
  Sex: Male

DRUGS (7)
  1. METFORMIN [Suspect]
     Indication: TYPE 2 DIABETES MELLITUS
     Route: 048
     Dates: start: 20060101, end: 20081203
  2. METFORMIN [Suspect]
     Route: 048
     Dates: start: 20081218
  3. THALIDOMIDE [Suspect]
     Indication: MYELODYSPLASTIC SYNDROME
     Route: 048
     Dates: start: 20081022, end: 20081209
  4. EXJADE [Suspect]
     Indication: MINERAL SUPPLEMENTATION
     Route: 048
     Dates: start: 20070101, end: 20081209
  5. PHENPROCOUMON [Concomitant]
     Route: 048
  6. REPAGLINIDE [Concomitant]
     Route: 048
  7. FOLIC ACID [Concomitant]
     Route: 048

REACTIONS (2)
  - HEPATOCELLULAR INJURY [None]
  - JAUNDICE [None]
